FAERS Safety Report 5243028-4 (Version None)
Quarter: 2007Q1

REPORT INFORMATION
  Report Type: 
  Country: None (occurrence: None)
  Receive Date: 20061201
  Receipt Date: 20060811
  Transmission Date: 20070707
  Serious: No
  Sender: FDA-Public Use
  Company Number: 2006PV019358

PATIENT
  Age: 56 Year
  Sex: Female
  Weight: 116.5744 kg

DRUGS (8)
  1. BYETTA [Suspect]
     Indication: DIABETES MELLITUS NON-INSULIN-DEPENDENT
     Dosage: SEE IMAGE
     Route: 058
     Dates: start: 20060804, end: 20060903
  2. BYETTA [Suspect]
     Indication: DIABETES MELLITUS NON-INSULIN-DEPENDENT
     Dosage: SEE IMAGE
     Route: 058
     Dates: start: 20060904
  3. GLUCOPHAGE [Concomitant]
  4. NOVOLIN 70/30 [Concomitant]
  5. AVANIDA [Concomitant]
  6. AMARYL [Concomitant]
  7. AVANDIA [Concomitant]
  8. NOVOLIN 50/50 [Concomitant]

REACTIONS (10)
  - BLOOD GLUCOSE INCREASED [None]
  - COLD SWEAT [None]
  - DECREASED APPETITE [None]
  - EARLY SATIETY [None]
  - FEELING ABNORMAL [None]
  - GASTROENTERITIS VIRAL [None]
  - INFLAMMATION [None]
  - LETHARGY [None]
  - NAUSEA [None]
  - WEIGHT DECREASED [None]
